FAERS Safety Report 7497829-2 (Version None)
Quarter: 2011Q2

REPORT INFORMATION
  Report Type: 
  Country: None (occurrence: None)
  Receive Date: 20110524
  Receipt Date: 20110107
  Transmission Date: 20111010
  Serious: Yes (Hospitalization)
  Sender: FDA-Public Use
  Company Number: US-BAYER-201031547NA

PATIENT
  Age: 18 Year
  Sex: Female
  Weight: 64.399 kg

DRUGS (27)
  1. PERCOCET [Concomitant]
     Indication: PAIN
     Dosage: UNK
     Dates: start: 20080816
  2. PHENERGAN HCL [Concomitant]
     Indication: GASTROENTERITIS
     Dosage: UNK
     Route: 030
     Dates: start: 20090414
  3. METHYLPREDNISOLONE [Concomitant]
     Dosage: 4 MG, UNK
  4. HYDROCODONE BITARTRATE [Suspect]
     Dosage: UNK
     Dates: start: 20080801
  5. UNKNOWN [Concomitant]
  6. ROCEPHIN [Concomitant]
     Indication: URINARY TRACT INFECTION
     Dosage: UNK
     Dates: start: 20081008
  7. AZITHROMYCIN [Concomitant]
     Dosage: 250 MG, UNK
  8. IBUPROFEN [Concomitant]
     Dosage: 800 MG, UNK
  9. YASMIN [Suspect]
  10. SERTRALINE HYDROCHLORIDE [Concomitant]
     Dosage: 50 MG, UNK
  11. CLINDAMYCIN [Concomitant]
     Dosage: 150 MG, UNK
  12. FLUTICASONE PROPIONATE [Concomitant]
  13. ALBUTEROL SULFATE AUTOHALER [Concomitant]
     Dosage: 0.083 UNK, UNK
  14. YAZ [Suspect]
     Indication: CONTRACEPTION
  15. SINGULAIR [Concomitant]
     Indication: ASTHMA
     Dosage: DAILY DOSE 10 MG
     Route: 048
  16. CIPRO [Concomitant]
     Indication: GASTROENTERITIS
     Dosage: UNK
     Dates: start: 20090414
  17. PHENTERMINE [Concomitant]
     Dosage: 37.5 MG, UNK
  18. NITROFURANTOIN [Concomitant]
     Dosage: 100 MG, UNK
  19. PROMETHAZINE [Concomitant]
  20. SINGULAIR [Concomitant]
  21. CIPRO [Concomitant]
     Indication: URINARY TRACT INFECTION
     Dosage: UNK
     Dates: start: 20081008
  22. ZITHROMAX [Concomitant]
     Indication: GASTROENTERITIS
  23. FAMCICLOVIR [Concomitant]
     Dosage: 500 MG, UNK
  24. AZITHROMYCIN [Concomitant]
     Dosage: 500 MG, UNK
  25. YAZ [Suspect]
     Indication: PREMENSTRUAL SYNDROME
     Dosage: UNK
     Route: 048
     Dates: start: 20070401, end: 20081001
  26. ONDANSETRON [Concomitant]
  27. CLONAZEPAM [Concomitant]
     Dosage: 1 MG, UNK

REACTIONS (19)
  - APHAGIA [None]
  - RETCHING [None]
  - DIARRHOEA [None]
  - DEHYDRATION [None]
  - MENSTRUATION IRREGULAR [None]
  - CHOLESTEROSIS [None]
  - PALLOR [None]
  - NAUSEA [None]
  - CONSTIPATION [None]
  - GASTROINTESTINAL PAIN [None]
  - ABDOMINAL PAIN UPPER [None]
  - CHOLECYSTITIS CHRONIC [None]
  - HEADACHE [None]
  - ABDOMINAL DISTENSION [None]
  - VOMITING [None]
  - ERUCTATION [None]
  - BILIARY COLIC [None]
  - VAGINAL HAEMORRHAGE [None]
  - URINARY TRACT INFECTION [None]
